FAERS Safety Report 8537226-1 (Version None)
Quarter: 2012Q3

REPORT INFORMATION
  Report Type: 
  Country: None (occurrence: None)
  Receive Date: 20120725
  Receipt Date: 20120711
  Transmission Date: 20120928
  Serious: No
  Sender: FDA-Public Use
  Company Number: US-ASTRAZENECA-2012SE45269

PATIENT
  Age: 62 Year
  Sex: Male

DRUGS (1)
  1. SYMBICORT [Suspect]
     Dosage: UNKNOWN
     Route: 055

REACTIONS (4)
  - DYSPNOEA [None]
  - ADVERSE EVENT [None]
  - DRUG DOSE OMISSION [None]
  - BRONCHOSPASM [None]
